FAERS Safety Report 5637327-1 (Version None)
Quarter: 2008Q1

REPORT INFORMATION
  Report Type: 
  Country: None (occurrence: None)
  Receive Date: 20080219
  Receipt Date: 20080207
  Transmission Date: 20080703
  Serious: Yes (Other)
  Sender: FDA-Public Use
  Company Number: CHPA2008US02528

PATIENT
  Age: 62 Year
  Sex: Female
  Weight: 49.4 kg

DRUGS (4)
  1. LAMISIL AT [Suspect]
     Indication: FUNGAL INFECTION
     Dosage: TOPICAL
     Route: 061
     Dates: start: 20080206, end: 20080206
  2. ATENOLOL [Concomitant]
  3. HYDROCHLOROTHIAZIDE [Concomitant]
  4. CLONIDINE [Concomitant]

REACTIONS (2)
  - APPLICATION SITE DISCOLOURATION [None]
  - APPLICATION SITE IRRITATION [None]
